FAERS Safety Report 18957232 (Version 1)
Quarter: 2021Q1

REPORT INFORMATION
  Report Type: Spontaneous
  Country: CN (occurrence: CN)
  Receive Date: 20210302
  Receipt Date: 20210302
  Transmission Date: 20210420
  Serious: Yes (Hospitalization)
  Sender: FDA-Public Use
  Company Number: CN-TEVA-2021-CN-1883220

PATIENT
  Age: 50 Year
  Sex: Female

DRUGS (1)
  1. ACITRETIN UNK [Suspect]
     Active Substance: ACITRETIN
     Indication: ERYTHRODERMIC PSORIASIS
     Route: 048

REACTIONS (1)
  - Erythrodermic psoriasis [Recovering/Resolving]
